FAERS Safety Report 7177330-6 (Version None)
Quarter: 2010Q4

REPORT INFORMATION
  Report Type: 
  Country: None (occurrence: None)
  Receive Date: 20101220
  Receipt Date: 20101206
  Transmission Date: 20110411
  Serious: No
  Sender: FDA-Public Use
  Company Number: US-ROXANE LABORATORIES, INC.-2010-RO-01707RO

PATIENT
  Sex: Female

DRUGS (3)
  1. PREDNISONE [Suspect]
  2. METHOTREXATE [Suspect]
  3. ENBREL [Concomitant]

REACTIONS (3)
  - ACTIVITIES OF DAILY LIVING IMPAIRED [None]
  - BACK INJURY [None]
  - WALKING DISABILITY [None]
